FAERS Safety Report 6518199-X (Version None)
Quarter: 2009Q4

REPORT INFORMATION
  Report Type: 
  Country: None (occurrence: None)
  Receive Date: 20091224
  Receipt Date: 20091221
  Transmission Date: 20100525
  Serious: Yes (Death)
  Sender: FDA-Public Use
  Company Number: US-GILEAD-2009-0026144

PATIENT
  Sex: Female

DRUGS (11)
  1. LETAIRIS [Suspect]
     Indication: PULMONARY ARTERIAL HYPERTENSION
     Route: 048
     Dates: start: 20091112, end: 20091117
  2. LASIX [Concomitant]
  3. NORVASC [Concomitant]
  4. LOVENOX [Concomitant]
  5. REVATIO [Concomitant]
  6. HUMALOG [Concomitant]
  7. LYRICA [Concomitant]
  8. SYNTHROID [Concomitant]
  9. MYCOSTATIN [Concomitant]
  10. REGLAN [Concomitant]
  11. NOVOLIN [Concomitant]

REACTIONS (1)
  - DEATH [None]
